FAERS Safety Report 9421525 (Version 1)
Quarter: 2013Q3

REPORT INFORMATION
  Report Type: Spontaneous
  Country: BR (occurrence: BR)
  Receive Date: 20130726
  Receipt Date: 20130726
  Transmission Date: 20140515
  Serious: Yes (Hospitalization)
  Sender: FDA-Public Use
  Company Number: BR-BIOGENIDEC-2013BI068374

PATIENT
  Age: 53 Year
  Sex: Male

DRUGS (4)
  1. AVONEX [Suspect]
     Indication: MULTIPLE SCLEROSIS
     Route: 030
     Dates: start: 2009, end: 201304
  2. AVONEX [Suspect]
     Indication: MULTIPLE SCLEROSIS
     Route: 030
     Dates: start: 201304
  3. ATENOLOL [Concomitant]
  4. DEPAKENE [Concomitant]
     Indication: CONVULSION

REACTIONS (3)
  - Pneumonia [Not Recovered/Not Resolved]
  - Convulsion [Recovered/Resolved]
  - Influenza like illness [Unknown]
